APPROVED DRUG PRODUCT: BARSTATIN 100
Active Ingredient: NYSTATIN
Strength: 100%
Dosage Form/Route: POWDER;ORAL
Application: A062489 | Product #001
Applicant: BARLAN PHARMACAL CO INC
Approved: Apr 27, 1988 | RLD: No | RS: No | Type: DISCN